FAERS Safety Report 24285090 (Version 1)
Quarter: 2024Q3

REPORT INFORMATION
  Report Type: Spontaneous
  Country: US (occurrence: None)
  Receive Date: 20240901
  Receipt Date: 20240901
  Transmission Date: 20241017
  Serious: No
  Sender: Public
  Company Number: None

PATIENT
  Sex: Female

DRUGS (1)
  1. ZEJULA [Suspect]
     Active Substance: NIRAPARIB
     Indication: Ovarian cancer
     Dosage: 100MG DAILY BY MOUTH
     Route: 048
     Dates: start: 202205, end: 20240808

REACTIONS (2)
  - Malignant neoplasm progression [None]
  - Therapy cessation [None]
